FAERS Safety Report 8178355-4 (Version None)
Quarter: 2012Q1

REPORT INFORMATION
  Report Type: 
  Country: None (occurrence: None)
  Receive Date: 20120301
  Receipt Date: 20120227
  Transmission Date: 20120608
  Serious: Yes (Other)
  Sender: FDA-Public Use
  Company Number: US-PFIZER INC-2012034818

PATIENT
  Sex: Female
  Weight: 65.306 kg

DRUGS (18)
  1. CHANTIX [Suspect]
     Indication: SMOKING CESSATION THERAPY
     Dosage: UNK
     Route: 048
     Dates: start: 20100101
  2. MECLIZINE [Concomitant]
     Indication: DIZZINESS
     Dosage: UNK
  3. FISH OIL [Concomitant]
     Dosage: 1000 MG, UNK
  4. XANAX [Concomitant]
     Dosage: 3 MG, 2X/DAY
  5. PROTONIX [Concomitant]
     Indication: GASTRIC DISORDER
     Dosage: 40 MG, 2X/DAY
  6. COMBIVENT [Concomitant]
     Dosage: TWO PUFFS, 4X/DAY
  7. PROVENTIL-HFA [Concomitant]
     Dosage: 120 UG, UNK
  8. METFORMIN [Concomitant]
     Indication: DIABETES MELLITUS
     Dosage: 500 MG, UNK
  9. ISORDIL [Concomitant]
     Dosage: 30 MG, UNK
  10. TRAZODONE [Concomitant]
     Dosage: 100 MG, AS NEEDED
  11. SUPER B COMPLEX [Concomitant]
     Dosage: UNK
  12. LIPITOR [Concomitant]
     Dosage: 20 MG, UNK
  13. CARDIZEM [Concomitant]
     Dosage: ^118 MG^ (FREQUENCY UNKNOWN)
  14. ATARAX [Concomitant]
     Dosage: 115 MG, UNK
  15. VISTARIL [Concomitant]
     Dosage: 50 MG, UNK
  16. CHANTIX [Suspect]
     Dosage: UNK
     Dates: start: 20100101
  17. FOLIC ACID [Concomitant]
     Dosage: 1 MG, UNK
  18. THIAMINE [Concomitant]
     Dosage: 100 MG, UNK

REACTIONS (4)
  - GASTRIC INFECTION [None]
  - UTERINE DISORDER [None]
  - HEPATIC FAILURE [None]
  - PNEUMOTHORAX [None]
